FAERS Safety Report 7366350-4 (Version None)
Quarter: 2011Q1

REPORT INFORMATION
  Report Type: 
  Country: None (occurrence: None)
  Receive Date: 20110322
  Receipt Date: 20110308
  Transmission Date: 20110831
  Serious: Yes (Hospitalization)
  Sender: FDA-Public Use
  Company Number: US-JNJFOC-20090106811

PATIENT
  Sex: Male
  Weight: 65.2 kg

DRUGS (4)
  1. REMICADE [Suspect]
     Dosage: TOTAL 27 DOSES
     Route: 042
     Dates: start: 20050224, end: 20071105
  2. REMICADE [Suspect]
     Indication: INFLAMMATORY BOWEL DISEASE
     Dosage: TOTAL 26 DOSES
     Route: 042
     Dates: start: 20050224, end: 20071105
  3. REMICADE [Suspect]
     Dosage: TOTAL 18 DOSES
     Route: 042
     Dates: start: 20050224, end: 20071105
  4. REMICADE [Suspect]
     Route: 042
     Dates: start: 20050224, end: 20071105

REACTIONS (1)
  - ABDOMINAL PAIN [None]
